FAERS Safety Report 4946351-3 (Version None)
Quarter: 2006Q1

REPORT INFORMATION
  Report Type: 
  Country: None (occurrence: None)
  Receive Date: 20060317
  Receipt Date: 20060228
  Transmission Date: 20060701
  Serious: Yes (Death, Hospitalization, Other)
  Sender: FDA-Public Use
  Company Number: JP-ABBOTT-06P-087-0326337-00

PATIENT
  Sex: Male

DRUGS (9)
  1. LEUPLIN FOR INJECTION KIT [Suspect]
     Indication: PROSTATE CANCER STAGE IV
     Route: 058
     Dates: start: 20010912, end: 20040816
  2. LEUPLIN FOR INJECTION KIT [Suspect]
     Route: 058
     Dates: start: 20050131, end: 20051220
  3. LEUPLIN FOR INJECTION KIT [Suspect]
     Route: 058
     Dates: start: 20060206, end: 20060206
  4. FLUTAMIDE [Suspect]
     Indication: PROSTATE CANCER
  5. CHLORMADINONE ACETATE TAB [Concomitant]
     Indication: PROSTATE CANCER STAGE IV
     Route: 048
     Dates: start: 20060206, end: 20060212
  6. FOSFESTROL TETRASODIUM [Concomitant]
     Indication: PROSTATE CANCER STAGE IV
     Route: 048
     Dates: start: 20030926, end: 20051204
  7. BICALUTAMIDE [Concomitant]
     Indication: PROSTATE CANCER STAGE IV
     Route: 048
     Dates: start: 20051205, end: 20060106
  8. GOSERELIN ACETATE [Concomitant]
     Dates: start: 20010801, end: 20010912
  9. GOSERELIN ACETATE [Concomitant]
     Dates: start: 20040901, end: 20050131

REACTIONS (3)
  - CARDIAC ARREST [None]
  - HAEMATURIA [None]
  - INTERSTITIAL LUNG DISEASE [None]
